FAERS Safety Report 7011643-3 (Version None)
Quarter: 2010Q3

REPORT INFORMATION
  Report Type: 
  Country: None (occurrence: None)
  Receive Date: 20100923
  Receipt Date: 20090506
  Transmission Date: 20110219
  Serious: No
  Sender: FDA-Public Use
  Company Number: US-WYE-H09240009

PATIENT
  Sex: Female
  Weight: 77.18 kg

DRUGS (3)
  1. PREMARIN [Suspect]
     Indication: HORMONE REPLACEMENT THERAPY
     Dosage: 1 G ONE DOSE ONLY
     Route: 067
     Dates: start: 20090422, end: 20090422
  2. ZOCOR [Concomitant]
  3. VITAMINS [Concomitant]

REACTIONS (2)
  - EXPIRED DRUG ADMINISTERED [None]
  - VAGINAL INFECTION [None]
